FAERS Safety Report 16451248 (Version 1)
Quarter: 2019Q2

REPORT INFORMATION
  Report Type: Spontaneous
  Country: HR (occurrence: HR)
  Receive Date: 20190619
  Receipt Date: 20190619
  Transmission Date: 20190711
  Serious: Yes (Other)
  Sender: FDA-Public Use
  Company Number: HR-PFIZER INC-2019260378

PATIENT
  Age: 17 Year
  Sex: Female

DRUGS (4)
  1. SANVAL [Suspect]
     Active Substance: ZOLPIDEM TARTRATE
     Dosage: 2 DF, UNK
     Route: 048
     Dates: start: 20190306, end: 20190306
  2. ZYPREXA [Concomitant]
     Active Substance: OLANZAPINE
     Route: 048
  3. XANAX [Suspect]
     Active Substance: ALPRAZOLAM
     Dosage: 9 DF, UNK
     Route: 048
     Dates: start: 20190306, end: 20190306
  4. ZOLOFT [Concomitant]
     Active Substance: SERTRALINE HYDROCHLORIDE
     Route: 048

REACTIONS (4)
  - Suicide attempt [Unknown]
  - Intentional overdose [Unknown]
  - Somnolence [Unknown]
  - Poisoning [Unknown]

NARRATIVE: CASE EVENT DATE: 20190306
